FAERS Safety Report 26150690 (Version 1)
Quarter: 2025Q4

REPORT INFORMATION
  Report Type: Report from Study
  Country: US (occurrence: US)
  Receive Date: 20251212
  Receipt Date: 20251212
  Transmission Date: 20260118
  Serious: Yes (Other)
  Sender: BIOGEN
  Company Number: US-BIOGEN-2094806

PATIENT
  Sex: Female

DRUGS (2)
  1. TYSABRI [Suspect]
     Active Substance: NATALIZUMAB
     Indication: Multiple sclerosis
  2. TYSABRI [Suspect]
     Active Substance: NATALIZUMAB
     Dates: start: 20101007, end: 20160328

REACTIONS (1)
  - Breast cancer stage IV [Not Recovered/Not Resolved]
